FAERS Safety Report 24831804 (Version 2)
Quarter: 2025Q2

REPORT INFORMATION
  Report Type: Report from Study
  Country: US (occurrence: US)
  Receive Date: 20250110
  Receipt Date: 20250407
  Transmission Date: 20250717
  Serious: Yes (Hospitalization)
  Sender: BOEHRINGER INGELHEIM
  Company Number: US-BoehringerIngelheim-2023-BI-243433

PATIENT
  Age: 82 Year
  Sex: Male

DRUGS (2)
  1. OFEV [Suspect]
     Active Substance: NINTEDANIB
     Indication: Idiopathic pulmonary fibrosis
     Dates: start: 20230607, end: 2024
  2. OFEV [Suspect]
     Active Substance: NINTEDANIB
     Indication: Interstitial lung disease
     Dates: start: 202409, end: 20250103

REACTIONS (12)
  - Influenza [Recovered/Resolved]
  - Pulmonary oedema [Not Recovered/Not Resolved]
  - Internal haemorrhage [Recovered/Resolved]
  - Haemoglobin decreased [Recovering/Resolving]
  - Oxygen saturation decreased [Unknown]
  - Weight decreased [Recovering/Resolving]
  - Decreased appetite [Not Recovered/Not Resolved]
  - Diarrhoea [Not Recovered/Not Resolved]
  - Weight decreased [Recovering/Resolving]
  - Total lung capacity decreased [Unknown]
  - Constipation [Not Recovered/Not Resolved]
  - Dyspnoea [Not Recovered/Not Resolved]

NARRATIVE: CASE EVENT DATE: 20230601
